FAERS Safety Report 8790040 (Version 2)
Quarter: 2012Q4

REPORT INFORMATION
  Report Type: Report from Study
  Country: JP (occurrence: JP)
  Receive Date: 20120917
  Receipt Date: 20120925
  Transmission Date: 20130627
  Serious: Yes (Hospitalization)
  Sender: FDA-Public Use
  Company Number: JP-NOVOPROD-359467

PATIENT
  Age: 27 Year
  Sex: Female
  Weight: 101 kg

DRUGS (6)
  1. LIRAGLUTIDE FLEXPEN [Suspect]
     Indication: TYPE 2 DIABETES MELLITUS
     Dosage: 0.3 mg, qd
     Route: 058
     Dates: start: 20111017
  2. LIRAGLUTIDE FLEXPEN [Suspect]
     Dosage: 0.6 mg, qd
     Route: 058
     Dates: start: 20111025
  3. LIRAGLUTIDE FLEXPEN [Suspect]
     Dosage: 0.9 mg, qd
     Route: 058
     Dates: start: 20111103
  4. NOVORAPID [Concomitant]
     Dosage: 40 U, qd
     Route: 065
  5. LEVEMIR [Concomitant]
     Dosage: 12 U, qd
     Route: 065
  6. SEIBULE [Concomitant]
     Dosage: 150 mg, qd
     Route: 065

REACTIONS (2)
  - Diabetic retinopathy [Recovering/Resolving]
  - Hyperglycaemia [Recovering/Resolving]
